FAERS Safety Report 7628545-1 (Version None)
Quarter: 2011Q3

REPORT INFORMATION
  Report Type: 
  Country: None (occurrence: None)
  Receive Date: 20110722
  Receipt Date: 20110131
  Transmission Date: 20111222
  Serious: No
  Sender: FDA-Public Use
  Company Number: US-BAYER-2011-011813

PATIENT
  Sex: Female
  Weight: 54 kg

DRUGS (6)
  1. BONIVA [Concomitant]
     Dosage: 2.5 MG, UNK
  2. BETASERON [Suspect]
     Indication: PRODUCT USED FOR UNKNOWN INDICATION
     Dosage: 0.25 MG, QOD
     Route: 058
  3. CALCIUM [CALCIUM] [Concomitant]
  4. DETROL [Concomitant]
     Dosage: 100 MG, UNK
  5. VITAMIN D [Concomitant]
     Dosage: 1000 U, UNK
  6. LOVASTATIN [Concomitant]
     Dosage: 10 MG, UNK

REACTIONS (3)
  - DIZZINESS [None]
  - DISORIENTATION [None]
  - FALL [None]
